FAERS Safety Report 4696626-0 (Version None)
Quarter: 2005Q2

REPORT INFORMATION
  Report Type: 
  Country: None (occurrence: None)
  Receive Date: 20050620
  Receipt Date: 20050121
  Transmission Date: 20051028
  Serious: Yes (Other)
  Sender: FDA-Public Use
  Company Number: 200510593US

PATIENT
  Age: 40 Year
  Sex: Female

DRUGS (1)
  1. LANTUS [Suspect]
     Dosage: QPM

REACTIONS (4)
  - ANAPHYLACTIC REACTION [None]
  - DIZZINESS [None]
  - FEELING ABNORMAL [None]
  - HEART RATE INCREASED [None]
